FAERS Safety Report 7771145-3 (Version None)
Quarter: 2011Q3

REPORT INFORMATION
  Report Type: 
  Country: None (occurrence: None)
  Receive Date: 20110922
  Receipt Date: 20110912
  Transmission Date: 20111222
  Serious: Yes (Life-Threatening, Hospitalization, Other)
  Sender: FDA-Public Use
  Company Number: US-GENENTECH-300430

PATIENT

DRUGS (7)
  1. CYCLOPHOSPHAMIDE [Suspect]
     Indication: CHRONIC LYMPHOCYTIC LEUKAEMIA
     Dosage: 200 MG/M2, UNK
     Route: 065
  2. ALEMTUZUMAB [Suspect]
     Indication: CHRONIC LYMPHOCYTIC LEUKAEMIA
     Dosage: 30 MG, QOD
     Route: 042
  3. RITUXIMAB [Suspect]
     Indication: CHRONIC LYMPHOCYTIC LEUKAEMIA
     Dosage: UNK
     Route: 065
  4. SULFAMETHOXAZOLE AND TRIMETHOPRIM [Concomitant]
     Indication: PROPHYLAXIS
     Dosage: UNK
  5. ALLOPURINOL [Concomitant]
     Indication: PROPHYLAXIS
     Dosage: UNK
  6. FLUDARABINE PHOSPHATE [Suspect]
     Indication: CHRONIC LYMPHOCYTIC LEUKAEMIA
     Dosage: 20 MG/M2, UNK
     Route: 065
  7. PEG-FILGRASTIM [Concomitant]
     Indication: PRODUCT USED FOR UNKNOWN INDICATION
     Dosage: 6 MG, UNK
     Route: 058

REACTIONS (17)
  - NEUTROPENIA [None]
  - CYTOMEGALOVIRUS INFECTION [None]
  - PNEUMONIA [None]
  - PNEUMONIA CYTOMEGALOVIRAL [None]
  - CRYPTOCOCCOSIS [None]
  - HERPES ZOSTER [None]
  - HISTOPLASMOSIS [None]
  - MORAXELLA INFECTION [None]
  - ANAEMIA HAEMOLYTIC AUTOIMMUNE [None]
  - THROMBOCYTOPENIA [None]
  - PYREXIA [None]
  - URINARY TRACT INFECTION [None]
  - SEPTIC SHOCK [None]
  - HERPES SIMPLEX [None]
  - FUNGAL INFECTION [None]
  - SEPSIS [None]
  - PNEUMOCYSTIS JIROVECI INFECTION [None]
